FAERS Safety Report 21148908 (Version 1)
Quarter: 2022Q3

REPORT INFORMATION
  Report Type: Spontaneous
  Country: US (occurrence: None)
  Receive Date: 20220729
  Receipt Date: 20220729
  Transmission Date: 20221027
  Serious: Yes (Hospitalization)
  Sender: FDA-Public Use
  Company Number: None

PATIENT
  Age: 67 Year
  Sex: Female

DRUGS (1)
  1. SUNITINIB [Suspect]
     Active Substance: SUNITINIB
     Dosage: FREQUENCY : DAILY;?
     Route: 048

REACTIONS (5)
  - Therapy interrupted [None]
  - Transfusion [None]
  - Blood bilirubin increased [None]
  - Red blood cell count decreased [None]
  - Nausea [None]

NARRATIVE: CASE EVENT DATE: 20220729
